FAERS Safety Report 8613350-X (Version None)
Quarter: 2012Q3

REPORT INFORMATION
  Report Type: 
  Country: None (occurrence: None)
  Receive Date: 20120822
  Receipt Date: 20120806
  Transmission Date: 20120928
  Serious: Yes (Other)
  Sender: FDA-Public Use
  Company Number: JP-009507513-1208JPN003915

PATIENT

DRUGS (7)
  1. URSO 250 [Concomitant]
     Indication: HEPATITIS C
     Route: 048
  2. JUVELA [Concomitant]
     Indication: HEPATITIS C
     Route: 048
  3. REBETOL [Suspect]
     Indication: HEPATITIS C
     Route: 048
     Dates: start: 20120524, end: 20120614
  4. REBETOL [Suspect]
     Route: 048
     Dates: start: 20120615
  5. TELAVIC [Suspect]
     Indication: HEPATITIS C
     Route: 048
     Dates: start: 20120524
  6. PEG-INTRON [Suspect]
     Indication: HEPATITIS C
     Dosage: 1.39MCG/KG/WEEK
     Route: 058
     Dates: start: 20120524
  7. HICEE [Concomitant]
     Indication: HEPATITIS C
     Route: 048

REACTIONS (3)
  - DRUG ERUPTION [None]
  - ANAEMIA [None]
  - HYPERURICAEMIA [None]
